FAERS Safety Report 8456286-X (Version None)
Quarter: 2012Q2

REPORT INFORMATION
  Report Type: 
  Country: None (occurrence: None)
  Receive Date: 20120621
  Receipt Date: 20120611
  Transmission Date: 20120825
  Serious: Yes (Death, Other)
  Sender: FDA-Public Use
  Company Number: DE-ROCHE-1077486

PATIENT
  Sex: Female

DRUGS (5)
  1. MABTHERA [Suspect]
     Dates: start: 20090914
  2. MABTHERA [Suspect]
     Indication: RHEUMATOID ARTHRITIS
     Dates: start: 20070201
  3. MABTHERA [Suspect]
     Dates: start: 20071030
  4. MABTHERA [Suspect]
     Dates: start: 20080819
  5. METHOTREXATE [Concomitant]
     Route: 051
     Dates: start: 19980101, end: 20080601

REACTIONS (5)
  - BLADDER PERFORATION [None]
  - MULTI-ORGAN FAILURE [None]
  - RENAL FAILURE ACUTE [None]
  - SEPSIS [None]
  - CLOSTRIDIUM DIFFICILE COLITIS [None]
